FAERS Safety Report 9720047 (Version 3)
Quarter: 2013Q4

REPORT INFORMATION
  Report Type: Report from Study
  Country: DE (occurrence: DE)
  Receive Date: 20131128
  Receipt Date: 20131227
  Transmission Date: 20140711
  Serious: Yes (Hospitalization)
  Sender: FDA-Public Use
  Company Number: DE-BRISTOL-MYERS SQUIBB COMPANY-19840487

PATIENT
  Age: 75 Year
  Sex: Female

DRUGS (1)
  1. IPILIMUMAB [Suspect]
     Indication: METASTATIC MALIGNANT MELANOMA
     Route: 042
     Dates: start: 20130703, end: 20130815

REACTIONS (3)
  - Atrial fibrillation [Recovered/Resolved]
  - Pneumonia klebsiella [Not Recovered/Not Resolved]
  - Pneumonia [Unknown]
